FAERS Safety Report 8150443-8 (Version None)
Quarter: 2012Q1

REPORT INFORMATION
  Report Type: 
  Country: None (occurrence: None)
  Receive Date: 20120220
  Receipt Date: 20120213
  Transmission Date: 20120608
  Serious: No
  Sender: FDA-Public Use
  Company Number: US-PFIZER INC-2012041071

PATIENT
  Sex: Female

DRUGS (3)
  1. CALAN [Suspect]
     Indication: HEART RATE IRREGULAR
     Dosage: 240 MG, UNK
  2. CALAN [Suspect]
     Indication: ATRIAL FIBRILLATION
     Dosage: 120 MG, UNK
  3. CALAN [Suspect]
     Dosage: 160 MG, UNK

REACTIONS (5)
  - THROMBOSIS [None]
  - COLD SWEAT [None]
  - HYPERHIDROSIS [None]
  - PALLOR [None]
  - HEART RATE DECREASED [None]
